FAERS Safety Report 22144052 (Version 4)
Quarter: 2024Q3

REPORT INFORMATION
  Report Type: Spontaneous
  Country: US (occurrence: US)
  Receive Date: 20230327
  Receipt Date: 20240820
  Transmission Date: 20241016
  Serious: No
  Sender: BRISTOL MYERS SQUIBB
  Company Number: US-BRISTOL-MYERS SQUIBB COMPANY-2023-043426

PATIENT
  Age: 76 Year
  Sex: Male

DRUGS (1)
  1. REVLIMID [Suspect]
     Active Substance: LENALIDOMIDE
     Indication: Plasma cell myeloma
     Dosage: FREQUENCY: OTHER?FREQUENCY: DAILY
     Route: 048

REACTIONS (5)
  - Inappropriate schedule of product administration [Unknown]
  - Fatigue [Unknown]
  - White blood cell count decreased [Unknown]
  - Contusion [Unknown]
  - Sinusitis [Unknown]

NARRATIVE: CASE EVENT DATE: 20230217
